FAERS Safety Report 13430204 (Version 1)
Quarter: 2017Q2

REPORT INFORMATION
  Report Type: Spontaneous
  Country: US (occurrence: US)
  Receive Date: 20170411
  Receipt Date: 20170411
  Transmission Date: 20170830
  Serious: No
  Sender: FDA-Public Use
  Company Number: None

PATIENT
  Sex: Female

DRUGS (1)
  1. IBRANCE [Suspect]
     Active Substance: PALBOCICLIB
     Indication: BREAST CANCER FEMALE
     Dosage: 125MG ORALLY DAILY FOR 21 DAYS ON, 7 DAYS OFF ORALLY
     Route: 048
     Dates: start: 20170223

REACTIONS (2)
  - Pulmonary congestion [None]
  - Hypersensitivity [None]
